FAERS Safety Report 13702988 (Version 1)
Quarter: 2017Q2

REPORT INFORMATION
  Report Type: Spontaneous
  Country: US (occurrence: US)
  Receive Date: 20170629
  Receipt Date: 20170629
  Transmission Date: 20170830
  Serious: Yes (Hospitalization)
  Sender: FDA-Public Use
  Company Number: US-FRESENIUS KABI-FK201705446

PATIENT
  Age: 65 Year
  Sex: Male

DRUGS (2)
  1. FENTANYL. [Concomitant]
     Active Substance: FENTANYL
     Indication: SEDATION
     Route: 042
  2. PROPOFOL (MANUFACTURER UNKNOWN) [Suspect]
     Active Substance: PROPOFOL
     Indication: SEDATION
     Route: 042

REACTIONS (3)
  - Hypertriglyceridaemia [Recovered/Resolved]
  - Cerebrovascular accident [Recovered/Resolved]
  - Pancreatitis [Recovered/Resolved]
